FAERS Safety Report 6175577-9 (Version None)
Quarter: 2009Q2

REPORT INFORMATION
  Report Type: 
  Country: None (occurrence: None)
  Receive Date: 20090501
  Receipt Date: 20090421
  Transmission Date: 20091009
  Serious: Yes (Other)
  Sender: FDA-Public Use
  Company Number: US-CELGENEUS-163-21880-09041995

PATIENT

DRUGS (3)
  1. REVLIMID [Suspect]
     Indication: NON-HODGKIN'S LYMPHOMA
     Route: 048
  2. REVLIMID [Suspect]
     Route: 048
  3. RITUXIMAB [Suspect]
     Indication: NON-HODGKIN'S LYMPHOMA
     Route: 051

REACTIONS (4)
  - HYPONATRAEMIA [None]
  - LYMPHOPENIA [None]
  - NEUTROPENIA [None]
  - TUMOUR LYSIS SYNDROME [None]
